FAERS Safety Report 5702291-3 (Version None)
Quarter: 2008Q2

REPORT INFORMATION
  Report Type: 
  Country: None (occurrence: None)
  Receive Date: 20080411
  Receipt Date: 20080331
  Transmission Date: 20081010
  Serious: Yes (Hospitalization)
  Sender: FDA-Public Use
  Company Number: FR-AMGEN-US111606

PATIENT
  Age: 40 Year
  Sex: Female

DRUGS (5)
  1. ENBREL [Suspect]
     Indication: ANKYLOSING SPONDYLITIS
     Route: 058
     Dates: start: 20041015, end: 20041215
  2. LANZOR [Concomitant]
     Route: 065
  3. ATENOLOL [Concomitant]
     Route: 065
  4. BUTAZOLIDIN [Concomitant]
     Dosage: UNKNOWN
     Route: 065
  5. LEVOTHYROXINE SODIUM [Concomitant]
     Route: 065

REACTIONS (1)
  - PULMONARY TUBERCULOSIS [None]
